FAERS Safety Report 15073685 (Version 1)
Quarter: 2018Q2

REPORT INFORMATION
  Report Type: Spontaneous
  Country: US (occurrence: US)
  Receive Date: 20180606
  Receipt Date: 20180606
  Transmission Date: 20180711
  Serious: Yes (Hospitalization)
  Sender: FDA-Public Use
  Company Number: None

PATIENT
  Age: 29 Year
  Sex: Male

DRUGS (1)
  1. COPAXONE [Suspect]
     Active Substance: GLATIRAMER ACETATE
     Dates: start: 20180514, end: 20180515

REACTIONS (3)
  - Disease recurrence [None]
  - Nuclear magnetic resonance imaging abnormal [None]
  - Tremor [None]

NARRATIVE: CASE EVENT DATE: 20180514
